FAERS Safety Report 10631224 (Version 1)
Quarter: 2014Q4

REPORT INFORMATION
  Report Type: Spontaneous
  Country: DE (occurrence: None)
  Receive Date: 20141203
  Receipt Date: 20141203
  Transmission Date: 20150529
  Serious: Yes (Hospitalization, Other)
  Sender: FDA-Public Use
  Company Number: DE-20140188

PATIENT
  Age: 16 Year
  Sex: Female

DRUGS (1)
  1. DOTAREM [Suspect]
     Active Substance: GADOTERATE MEGLUMINE
     Indication: NUCLEAR MAGNETIC RESONANCE IMAGING BRAIN
     Dosage: NOT OTHERWISE SPECIFIED
     Route: 042
     Dates: start: 20141118, end: 20141118

REACTIONS (5)
  - Cough [None]
  - Dizziness postural [None]
  - Oropharyngeal swelling [None]
  - Eyelid oedema [None]
  - Headache [None]

NARRATIVE: CASE EVENT DATE: 20141118
